FAERS Safety Report 10776906 (Version 1)
Quarter: 2015Q1

REPORT INFORMATION
  Report Type: Report from Study
  Country: US (occurrence: US)
  Receive Date: 20150209
  Receipt Date: 20150209
  Transmission Date: 20150721
  Serious: Yes (Other)
  Sender: FDA-Public Use
  Company Number: PHEH2015US002076

PATIENT
  Sex: Male

DRUGS (1)
  1. GLEEVEC [Suspect]
     Active Substance: IMATINIB MESYLATE
     Indication: CHRONIC MYELOID LEUKAEMIA
     Dosage: 400 MG, QD
     Route: 048

REACTIONS (13)
  - Diabetic retinopathy [Unknown]
  - Aphasia [Unknown]
  - Vision blurred [Unknown]
  - Red cell distribution width increased [Unknown]
  - Headache [Unknown]
  - Constipation [Unknown]
  - Melaena [Unknown]
  - Oral pain [Unknown]
  - Nausea [Unknown]
  - Rectal haemorrhage [Unknown]
  - Diarrhoea [Unknown]
  - Hearing impaired [Unknown]
  - Arthralgia [Unknown]
